FAERS Safety Report 4745667-3 (Version None)
Quarter: 2005Q3

REPORT INFORMATION
  Report Type: 
  Country: None (occurrence: None)
  Receive Date: 20050811
  Receipt Date: 20050802
  Transmission Date: 20060218
  Serious: Yes (Hospitalization, Other)
  Sender: FDA-Public Use
  Company Number: 2005099022

PATIENT
  Age: 68 Year
  Sex: Male

DRUGS (8)
  1. CABERGOLINE [Suspect]
     Indication: PARKINSONISM
     Dosage: SEE IMAGE
     Route: 048
     Dates: start: 20050121, end: 20050217
  2. CABERGOLINE [Suspect]
     Indication: PARKINSONISM
     Dosage: SEE IMAGE
     Route: 048
     Dates: start: 20050218, end: 20050616
  3. CABERGOLINE [Suspect]
     Indication: PARKINSONISM
     Dosage: SEE IMAGE
     Route: 048
     Dates: start: 20050617
  4. LEVODOPA-CARBIDOPA (CARBIDOPA, LEVODOPA) [Concomitant]
  5. SOLON (SOFALCONE) [Concomitant]
  6. BLOPRESS (CANDESARTAN CILEXETIL) [Concomitant]
  7. MAGNESIUM OXIDE (MAGNESIUM OXIDE) [Interacting]
  8. RABEPRAZOLE SODIUM [Concomitant]

REACTIONS (4)
  - BLOOD UREA INCREASED [None]
  - CEREBRAL ATROPHY [None]
  - DEHYDRATION [None]
  - NEUROLEPTIC MALIGNANT SYNDROME [None]
